FAERS Safety Report 16002730 (Version 2)
Quarter: 2019Q3

REPORT INFORMATION
  Report Type: Report from Study
  Country: US (occurrence: US)
  Receive Date: 20190225
  Receipt Date: 20190827
  Transmission Date: 20191004
  Serious: Yes (Hospitalization, Other)
  Sender: FDA-Public Use
  Company Number: US-SA-2019SA045325

PATIENT
  Age: 82 Year
  Sex: Male

DRUGS (2)
  1. DUPILUMAB [Suspect]
     Active Substance: DUPILUMAB
     Indication: DERMATITIS ATOPIC
  2. DUPILUMAB [Suspect]
     Active Substance: DUPILUMAB
     Indication: ECZEMA
     Dosage: 300 MG/ML, QOW
     Route: 058
     Dates: start: 201809

REACTIONS (4)
  - Rash [Unknown]
  - Burning sensation [Unknown]
  - Pneumonia [Unknown]
  - Discomfort [Unknown]

NARRATIVE: CASE EVENT DATE: 20190214
